FAERS Safety Report 5444706-4 (Version None)
Quarter: 2007Q3

REPORT INFORMATION
  Report Type: 
  Country: None (occurrence: None)
  Receive Date: 20070906
  Receipt Date: 20070212
  Transmission Date: 20080115
  Serious: No
  Sender: FDA-Public Use
  Company Number: A0639208A

PATIENT
  Age: 96 Year
  Sex: Female

DRUGS (5)
  1. REQUIP [Suspect]
     Indication: RESTLESS LEGS SYNDROME
     Route: 048
     Dates: start: 20060101
  2. VITAMINS [Concomitant]
  3. MINERAL TAB [Concomitant]
  4. ARTIFICIAL SALIVA [Concomitant]
  5. EYE DROPS [Concomitant]

REACTIONS (1)
  - DRUG INEFFECTIVE [None]
